FAERS Safety Report 14290457 (Version 1)
Quarter: 2017Q4

REPORT INFORMATION
  Report Type: Report from Study
  Country: US (occurrence: US)
  Receive Date: 20171215
  Receipt Date: 20171215
  Transmission Date: 20180321
  Serious: Yes (Other)
  Sender: FDA-Public Use
  Company Number: US-JNJFOC-20171133166

PATIENT
  Age: 78 Year
  Sex: Male

DRUGS (9)
  1. IMBRUVICA [Suspect]
     Active Substance: IBRUTINIB
     Indication: B-CELL SMALL LYMPHOCYTIC LYMPHOMA
     Route: 048
     Dates: start: 20161202
  2. SOMA [Concomitant]
     Active Substance: CARISOPRODOL
  3. LOPERAMIDE [Concomitant]
     Active Substance: LOPERAMIDE
  4. CLARITIN [Concomitant]
     Active Substance: LORATADINE
  5. TAMSULOSIN HYDROCHLORIDE. [Concomitant]
     Active Substance: TAMSULOSIN HYDROCHLORIDE
  6. VALACYCLOVIR [Concomitant]
     Active Substance: VALACYCLOVIR HYDROCHLORIDE
  7. ATORVASTATIN [Concomitant]
     Active Substance: ATORVASTATIN
  8. PRILOSEC [Concomitant]
     Active Substance: OMEPRAZOLE MAGNESIUM
  9. NORVASC [Concomitant]
     Active Substance: AMLODIPINE BESYLATE

REACTIONS (4)
  - Off label use [Unknown]
  - Incorrect dose administered [Unknown]
  - Dyspnoea [Not Recovered/Not Resolved]
  - Arrhythmia [Unknown]

NARRATIVE: CASE EVENT DATE: 20161202
